FAERS Safety Report 8409565-6 (Version None)
Quarter: 2012Q2

REPORT INFORMATION
  Report Type: 
  Country: None (occurrence: None)
  Receive Date: 20120531
  Receipt Date: 20120531
  Transmission Date: 20120825
  Serious: Yes (Other)
  Sender: FDA-Public Use
  Company Number: None

PATIENT
  Sex: Female

DRUGS (3)
  1. INCIVEK [Concomitant]
  2. RIBAVIRIN [Suspect]
     Dosage: 180MCG QW SQ
     Route: 058
     Dates: start: 20120503
  3. PEGASYS [Suspect]
     Dosage: 1000MG DAILY PO
     Route: 048

REACTIONS (4)
  - RASH GENERALISED [None]
  - PRURITUS [None]
  - OEDEMA PERIPHERAL [None]
  - JOINT SWELLING [None]
